FAERS Safety Report 13748780 (Version 1)
Quarter: 2017Q3

REPORT INFORMATION
  Report Type: Spontaneous
  Country: US (occurrence: US)
  Receive Date: 20170712
  Receipt Date: 20170712
  Transmission Date: 20171127
  Serious: Yes (Hospitalization)
  Sender: FDA-Public Use
  Company Number: None

PATIENT
  Age: 66 Year
  Sex: Male

DRUGS (4)
  1. ERTAPENEM [Suspect]
     Active Substance: ERTAPENEM
     Indication: SKIN ULCER
     Route: 042
     Dates: start: 20160404, end: 20160404
  2. PIPERACILLIN/TAZOBACTAM [Suspect]
     Active Substance: PIPERACILLIN SODIUM\TAZOBACTAM SODIUM
     Indication: TOE AMPUTATION
     Route: 042
     Dates: start: 20160307, end: 20160404
  3. PIPERACILLIN/TAZOBACTAM [Suspect]
     Active Substance: PIPERACILLIN SODIUM\TAZOBACTAM SODIUM
     Indication: SKIN ULCER
     Route: 042
     Dates: start: 20160307, end: 20160404
  4. ERTAPENEM [Suspect]
     Active Substance: ERTAPENEM
     Indication: TOE AMPUTATION
     Route: 042
     Dates: start: 20160404, end: 20160404

REACTIONS (9)
  - Hypertension [None]
  - Palpitations [None]
  - Urticaria [None]
  - Feeling abnormal [None]
  - Drug hypersensitivity [None]
  - Chills [None]
  - Infusion related reaction [None]
  - Rash [None]
  - Pruritus [None]

NARRATIVE: CASE EVENT DATE: 20160404
